FAERS Safety Report 7998389-X (Version None)
Quarter: 2011Q4

REPORT INFORMATION
  Report Type: 
  Country: None (occurrence: None)
  Receive Date: 20111221
  Receipt Date: 20110912
  Transmission Date: 20120403
  Serious: Yes (Other)
  Sender: FDA-Public Use
  Company Number: US-GLAXOSMITHKLINE-A0944176A

PATIENT
  Age: 74 Year
  Sex: Female

DRUGS (5)
  1. ASPIRIN [Concomitant]
  2. CYANOCOBALAMIN [Concomitant]
  3. CALCIUM [Concomitant]
  4. VITAMIN-MINERAL COMPOUND TAB [Concomitant]
  5. LOVAZA [Suspect]
     Indication: PRODUCT USED FOR UNKNOWN INDICATION
     Dosage: 3G THREE TIMES PER DAY
     Route: 048
     Dates: start: 20080101

REACTIONS (1)
  - OPERATIVE HAEMORRHAGE [None]
